FAERS Safety Report 8003721-7 (Version None)
Quarter: 2011Q4

REPORT INFORMATION
  Report Type: 
  Country: None (occurrence: None)
  Receive Date: 20111222
  Receipt Date: 20111220
  Transmission Date: 20120403
  Serious: Yes (Hospitalization)
  Sender: FDA-Public Use
  Company Number: DE-GLAXOSMITHKLINE-Z0012645A

PATIENT
  Sex: Male
  Weight: 92 kg

DRUGS (2)
  1. RAMIPRIL [Concomitant]
     Indication: HYPERTENSION
     Dosage: 2.5MG PER DAY
     Route: 048
     Dates: start: 20070101
  2. PAZOPANIB [Suspect]
     Indication: RENAL CELL CARCINOMA
     Dosage: 600MG PER DAY
     Route: 048
     Dates: start: 20111025

REACTIONS (1)
  - PANCREATITIS [None]
